FAERS Safety Report 15118790 (Version 3)
Quarter: 2018Q3

REPORT INFORMATION
  Report Type: Spontaneous
  Country: JP (occurrence: JP)
  Receive Date: 20180709
  Receipt Date: 20180802
  Transmission Date: 20181010
  Serious: Yes (Death, Hospitalization)
  Sender: FDA-Public Use
  Company Number: JP-AMGEN-JPNSP2018092044

PATIENT
  Age: 65 Year
  Sex: Male

DRUGS (17)
  1. NEXIUM [Concomitant]
     Active Substance: ESOMEPRAZOLE MAGNESIUM
  2. NEOMALLERMIN [Concomitant]
     Active Substance: DEXCHLORPHENIRAMINE MALEATE
  3. PRECIPITATED CALCIUM CARBONATE [Concomitant]
     Active Substance: CALCIUM CARBONATE
  4. ADALAT [Concomitant]
     Active Substance: NIFEDIPINE
  5. TEPRENONE [Concomitant]
     Active Substance: TEPRENONE
  6. MYSLEE [Concomitant]
     Active Substance: ZOLPIDEM TARTRATE
  7. ALLEGRA [Concomitant]
     Active Substance: FEXOFENADINE HYDROCHLORIDE
  8. BISOLVON [Concomitant]
     Active Substance: BROMHEXINE HYDROCHLORIDE
  9. URSO [Concomitant]
     Active Substance: URSODIOL
  10. VASOLAN [Concomitant]
     Active Substance: VERAPAMIL HYDROCHLORIDE
  11. FOLIAMIN [Concomitant]
     Active Substance: FOLIC ACID
  12. KAYEXALATE [Concomitant]
     Active Substance: SODIUM POLYSTYRENE SULFONATE
  13. PARSABIV [Suspect]
     Active Substance: ETELCALCETIDE HYDROCHLORIDE
     Indication: HYPERPARATHYROIDISM SECONDARY
     Dosage: 5 MG, 3 TIMES/WK
     Route: 042
     Dates: start: 20180618, end: 20180709
  14. MECOBALAMIN [Concomitant]
     Active Substance: METHYLCOBALAMIN
  15. REMITCH [Concomitant]
     Active Substance: NALFURAFINE HYDROCHLORIDE
  16. KIKLIN [Concomitant]
     Active Substance: BIXALOMER
  17. THEOLONG [Concomitant]
     Active Substance: THEOPHYLLINE ANHYDROUS

REACTIONS (2)
  - Cerebral haemorrhage [Fatal]
  - Colitis ischaemic [Fatal]

NARRATIVE: CASE EVENT DATE: 20180630
